FAERS Safety Report 15651119 (Version 1)
Quarter: 2018Q4

REPORT INFORMATION
  Report Type: Spontaneous
  Country: US (occurrence: US)
  Receive Date: 20181123
  Receipt Date: 20181123
  Transmission Date: 20190205
  Serious: Yes (Other)
  Sender: FDA-Public Use
  Company Number: US-AUROBINDO-AUR-APL-2018-055635

PATIENT
  Age: 32 Year
  Sex: Female

DRUGS (2)
  1. ASPIRIN                            /00002701/ [Suspect]
     Active Substance: ASPIRIN
     Indication: PRODUCT USED FOR UNKNOWN INDICATION
     Dosage: UNK
     Route: 065
  2. ACETAMINOPHEN. [Suspect]
     Active Substance: ACETAMINOPHEN
     Indication: PRODUCT USED FOR UNKNOWN INDICATION
     Dosage: UNK
     Route: 065

REACTIONS (8)
  - Mucocutaneous haemorrhage [Unknown]
  - Gingival bleeding [Unknown]
  - Menorrhagia [Unknown]
  - Petechiae [Unknown]
  - Platelet count decreased [Unknown]
  - Immune thrombocytopenic purpura [Unknown]
  - Skin haemorrhage [Unknown]
  - Contusion [Unknown]
